FAERS Safety Report 6140164-5 (Version None)
Quarter: 2009Q1

REPORT INFORMATION
  Report Type: 
  Country: None (occurrence: None)
  Receive Date: 20090324
  Receipt Date: 20090313
  Transmission Date: 20090719
  Serious: Yes (Hospitalization)
  Sender: FDA-Public Use
  Company Number: 000557

PATIENT
  Sex: Male

DRUGS (3)
  1. NEUPRO [Suspect]
     Dosage: (TRANSDERMAL)
     Route: 062
  2. CYCLIZINE [Concomitant]
  3. COMTESS [Concomitant]

REACTIONS (2)
  - CONFUSIONAL STATE [None]
  - HIP FRACTURE [None]
